FAERS Safety Report 19840959 (Version 1)
Quarter: 2021Q3

REPORT INFORMATION
  Report Type: Spontaneous
  Country: US (occurrence: US)
  Receive Date: 20210916
  Receipt Date: 20210916
  Transmission Date: 20211014
  Serious: No
  Sender: FDA-Public Use
  Company Number: None

PATIENT
  Age: 81 Year
  Sex: Male
  Weight: 74 kg

DRUGS (17)
  1. BETIMOL [Concomitant]
     Active Substance: TIMOLOL
  2. COMBIGAN [Concomitant]
     Active Substance: BRIMONIDINE TARTRATE\TIMOLOL MALEATE
  3. RHOPRESSA 0.02% [Concomitant]
  4. VITAMIN C [Concomitant]
     Active Substance: ASCORBIC ACID
  5. MAGNESIUM 250MG [Concomitant]
  6. CAPECITABINE 150MG [Suspect]
     Active Substance: CAPECITABINE
     Indication: COLORECTAL CANCER
     Dosage: ?          OTHER FREQUENCY:BID FOR 14/21 DAYS;?
     Route: 048
     Dates: start: 20210521
  7. NORCO [Concomitant]
     Active Substance: ACETAMINOPHEN\HYDROCODONE BITARTRATE
  8. FINASTERIDE 5MG [Concomitant]
     Active Substance: FINASTERIDE
  9. OMEPRAZOLE 20MG [Concomitant]
     Active Substance: OMEPRAZOLE
  10. LIDOCAINE?PRILOCAINE 2.5?2.5% [Concomitant]
  11. CAPECITABINE. [Suspect]
     Active Substance: CAPECITABINE
     Indication: COLORECTAL CANCER
     Dosage: ?          OTHER FREQUENCY:BID FOR 14/21 DAYS;?
     Route: 048
     Dates: start: 20180221
  12. TAMSULOSIN 0.4MG [Concomitant]
     Active Substance: TAMSULOSIN
  13. ACETAMINOPHEN 500MG [Concomitant]
     Active Substance: ACETAMINOPHEN
  14. HYDROCHLOROTHIAZIDE 12.5MG [Concomitant]
     Active Substance: HYDROCHLOROTHIAZIDE
  15. VITAMIN D 1000IU [Concomitant]
  16. ASPIRIN 81MG [Concomitant]
     Active Substance: ASPIRIN
  17. BIMATOPROST 0.03% [Concomitant]
     Active Substance: BIMATOPROST

REACTIONS (3)
  - Hypoaesthesia [None]
  - Pain in extremity [None]
  - Paraesthesia [None]

NARRATIVE: CASE EVENT DATE: 20210915
